FAERS Safety Report 7125967-2 (Version None)
Quarter: 2010Q4

REPORT INFORMATION
  Report Type: 
  Country: None (occurrence: None)
  Receive Date: 20101129
  Receipt Date: 20101116
  Transmission Date: 20110411
  Serious: Yes (Other)
  Sender: FDA-Public Use
  Company Number: US-JNJFOC-20101105760

PATIENT
  Sex: Female
  Weight: 80.74 kg

DRUGS (4)
  1. DURAGESIC-100 [Suspect]
     Indication: PAIN
     Route: 062
  2. DURAGESIC-100 [Suspect]
     Route: 062
  3. HYDROCODONE [Concomitant]
     Indication: BREAKTHROUGH PAIN
     Dosage: ONE EVERY 4-6 HOURS AS NEEDED
     Route: 048
  4. PLAVIX [Concomitant]
     Indication: ANTICOAGULANT THERAPY
     Dosage: 75MG/TABLET/85MG/ONE PER DAY/ORAL.
     Route: 048

REACTIONS (7)
  - DRUG DOSE OMISSION [None]
  - FEELING OF BODY TEMPERATURE CHANGE [None]
  - FLUID RETENTION [None]
  - GASTRIC DISORDER [None]
  - PRODUCT PACKAGING QUANTITY ISSUE [None]
  - VARICOSE VEIN [None]
  - WITHDRAWAL SYNDROME [None]
